FAERS Safety Report 14393921 (Version 2)
Quarter: 2018Q1

REPORT INFORMATION
  Report Type: Report from Study
  Country: US (occurrence: US)
  Receive Date: 20180116
  Receipt Date: 20180124
  Transmission Date: 20180509
  Serious: No
  Sender: FDA-Public Use
  Company Number: PHEH2018US001453

PATIENT
  Sex: Female

DRUGS (1)
  1. OMNITROPE [Suspect]
     Active Substance: SOMATROPIN
     Indication: PRODUCT USED FOR UNKNOWN INDICATION
     Route: 065

REACTIONS (8)
  - Stress [Unknown]
  - Lactose intolerance [Unknown]
  - Hepatomegaly [Unknown]
  - Insulin resistance [Unknown]
  - Weight decreased [Unknown]
  - Hepatic steatosis [Unknown]
  - Insomnia [Unknown]
  - Hypopituitarism [Unknown]
